FAERS Safety Report 10589543 (Version 1)
Quarter: 2014Q4

REPORT INFORMATION
  Report Type: Spontaneous
  Country: US (occurrence: None)
  Receive Date: 20141114
  Receipt Date: 20141114
  Transmission Date: 20150529
  Serious: Yes (Hospitalization)
  Sender: FDA-Public Use
  Company Number: 1496513

PATIENT
  Age: 61 Year
  Sex: Female

DRUGS (4)
  1. SALONPAS PAIN RELIEF [Suspect]
     Active Substance: MENTHOL\METHYL SALICYLATE
     Indication: NEURALGIA
     Dosage: 2-3 PATCHES APPLIED DAILY
     Dates: start: 20141015, end: 20141103
  2. NEURONTIN [Concomitant]
     Active Substance: GABAPENTIN
  3. PERCOCET [Concomitant]
     Active Substance: ACETAMINOPHEN\OXYCODONE HYDROCHLORIDE
  4. FENTANYL TRANSDERMAL SYSTEM [Concomitant]
     Active Substance: FENTANYL

REACTIONS (5)
  - Heart rate increased [None]
  - Vision blurred [None]
  - Application site pain [None]
  - Hyperhidrosis [None]
  - Atrial fibrillation [None]

NARRATIVE: CASE EVENT DATE: 201410
